FAERS Safety Report 8519910 (Version 13)
Quarter: 2012Q4

REPORT INFORMATION
  Report Type: 
  Country: US (occurrence: US)
  Receive Date: 20120418
  Receipt Date: 20121217
  Transmission Date: 20130627
  Serious: Yes (Hospitalization, Other)
  Sender: FDA-Public Use
  Company Number: US-ASTRAZENECA-2011SE32242

PATIENT
  Age: 31 Year
  Sex: Female
  Weight: 61.7 kg

DRUGS (21)
  1. NEXIUM [Suspect]
     Indication: GASTROOESOPHAGEAL REFLUX DISEASE
     Dosage: TWICE A DAY
     Route: 048
     Dates: start: 2007
  2. NEXIUM [Suspect]
     Indication: GASTROOESOPHAGEAL REFLUX DISEASE
     Dosage: 40 MG 1TIME A DAY SOMETIMES 2 TIMES A DAY WHEN NEEDED
     Route: 048
     Dates: start: 2007
  3. NEXIUM [Suspect]
     Indication: GASTROOESOPHAGEAL REFLUX DISEASE
     Route: 048
     Dates: start: 20090227
  4. NEXIUM [Suspect]
     Indication: GASTROOESOPHAGEAL REFLUX DISEASE
     Route: 048
     Dates: start: 20101206
  5. NEXIUM [Suspect]
     Indication: GASTROOESOPHAGEAL REFLUX DISEASE
     Route: 048
     Dates: start: 20110322
  6. ZANTAC [Concomitant]
  7. ZANTAC [Concomitant]
  8. MOTRIN [Concomitant]
  9. ULTRAM ER [Concomitant]
     Route: 048
     Dates: start: 20080821
  10. NUVARING [Concomitant]
     Route: 067
     Dates: start: 20090304
  11. AMOXICILLIN [Concomitant]
     Route: 048
     Dates: start: 20120315
  12. COLACE [Concomitant]
     Dates: start: 20091028
  13. BENTYL [Concomitant]
     Dates: start: 20091028
  14. AMITIZA [Concomitant]
     Dates: start: 20091028
  15. AMITIZA [Concomitant]
     Dates: start: 20110322
  16. KAPIDEX [Concomitant]
     Dates: start: 20091028
  17. PAXIL CR [Concomitant]
     Indication: GENERALISED ANXIETY DISORDER
     Route: 048
     Dates: start: 20030723
  18. LIBRAX [Concomitant]
     Dosage: 5 MG/2.5MG PRN
     Dates: start: 20030723
  19. PANTOPRAZOLE [Concomitant]
     Route: 048
     Dates: start: 20080821
  20. HYOSCYAMINE SUL [Concomitant]
     Route: 048
     Dates: start: 20080821
  21. PROMETHAZINE [Concomitant]
     Route: 048
     Dates: start: 20080821

REACTIONS (4)
  - Wrist fracture [Unknown]
  - Joint injury [Unknown]
  - Fall [Unknown]
  - Osteoporosis [Unknown]
